FAERS Safety Report 5028283-8 (Version None)
Quarter: 2006Q2

REPORT INFORMATION
  Report Type: 
  Country: None (occurrence: None)
  Receive Date: 20060613
  Receipt Date: 20060601
  Transmission Date: 20061013
  Serious: Yes (Hospitalization)
  Sender: FDA-Public Use
  Company Number: 2006071403

PATIENT
  Age: 64 Year
  Sex: Male

DRUGS (2)
  1. DOXYCYCLINE [Suspect]
     Indication: INFECTION
     Dosage: 100 MG (100 MG, 1 IN 1 D), ORAL
     Route: 048
     Dates: start: 20031222, end: 20031230
  2. CYCLOKAPRON (TABLET) (TRANEXAMIC ACID) [Suspect]
     Indication: HAEMOPTYSIS
     Dosage: 3000 MG (1 D), ORAL
     Route: 048
     Dates: start: 20031222, end: 20040102

REACTIONS (1)
  - DEEP VEIN THROMBOSIS [None]
